FAERS Safety Report 6279356-3 (Version None)
Quarter: 2009Q3

REPORT INFORMATION
  Report Type: 
  Country: None (occurrence: None)
  Receive Date: 20090721
  Receipt Date: 20090714
  Transmission Date: 20100115
  Serious: Yes (Death, Other)
  Sender: FDA-Public Use
  Company Number: 237758K09USA

PATIENT
  Age: 28 Year
  Sex: Female
  Weight: 41 kg

DRUGS (3)
  1. REBIF [Suspect]
     Indication: MULTIPLE SCLEROSIS
     Dosage: 44 MCG, 3 IN 1 WEEKS, SUBCUTANEOUS, 44 MCG, 3 IN 1 WEEKS, SUBCUTANEOUS
     Route: 058
     Dates: start: 20030919, end: 20080501
  2. REBIF [Suspect]
     Indication: MULTIPLE SCLEROSIS
     Dosage: 44 MCG, 3 IN 1 WEEKS, SUBCUTANEOUS, 44 MCG, 3 IN 1 WEEKS, SUBCUTANEOUS
     Route: 058
     Dates: start: 20080929, end: 20081202
  3. TIZANIDINE HCL [Concomitant]

REACTIONS (9)
  - ANAESTHETIC COMPLICATION [None]
  - ARTHRALGIA [None]
  - ARTHROPATHY [None]
  - EATING DISORDER [None]
  - GASTRITIS [None]
  - MALAISE [None]
  - ORAL DISORDER [None]
  - PNEUMONIA ASPIRATION [None]
  - POST PROCEDURAL INFECTION [None]
